FAERS Safety Report 12950477 (Version 2)
Quarter: 2016Q4

REPORT INFORMATION
  Report Type: Spontaneous
  Country: CN (occurrence: CN)
  Receive Date: 20161117
  Receipt Date: 20161215
  Transmission Date: 20170207
  Serious: Yes (Death)
  Sender: FDA-Public Use
  Company Number: CN-GUERBET LLC-1059658

PATIENT
  Age: 52 Year
  Sex: Male

DRUGS (5)
  1. LIPIODOL [Suspect]
     Active Substance: ETHIODIZED OIL
     Indication: TRANSCATHETER ARTERIAL CHEMOEMBOLISATION
     Route: 013
  2. FLUOROURACIL. [Concomitant]
     Active Substance: FLUOROURACIL
     Route: 013
  3. EPICRUBICIN [Concomitant]
     Route: 013
  4. HYDROXYCAMPTOTHECIN [Concomitant]
     Active Substance: 10-HYDROXYCAMPTOTHECIN
     Route: 013
  5. GELATIN [Concomitant]
     Active Substance: GELATIN
     Route: 013

REACTIONS (3)
  - Tumour lysis syndrome [Not Recovered/Not Resolved]
  - Multiple organ dysfunction syndrome [Fatal]
  - Off label use [Unknown]
